FAERS Safety Report 7424909-X (Version None)
Quarter: 2011Q2

REPORT INFORMATION
  Report Type: 
  Country: None (occurrence: None)
  Receive Date: 20110419
  Receipt Date: 20091030
  Transmission Date: 20111010
  Serious: Yes (Hospitalization, Other)
  Sender: FDA-Public Use
  Company Number: DE-GENENTECH-316886

PATIENT
  Age: 80 Year
  Sex: Female

DRUGS (1)
  1. LUCENTIS [Suspect]
     Indication: MACULAR DEGENERATION
     Dosage: UNK
     Route: 031
     Dates: start: 20080401

REACTIONS (5)
  - LOSS OF CONSCIOUSNESS [None]
  - VISUAL FIELD DEFECT [None]
  - DRY EYE [None]
  - FALL [None]
  - HEADACHE [None]
